FAERS Safety Report 11092556 (Version 1)
Quarter: 2015Q2

REPORT INFORMATION
  Report Type: Spontaneous
  Country: GB (occurrence: GB)
  Receive Date: 20150506
  Receipt Date: 20150506
  Transmission Date: 20150821
  Serious: Yes (Disabling)
  Sender: FDA-Public Use
  Company Number: GB-ACCORD-030512

PATIENT
  Age: 68 Year
  Sex: Male

DRUGS (13)
  1. DOXAZOSIN [Concomitant]
     Active Substance: DOXAZOSIN\DOXAZOSIN MESYLATE
  2. METHOTREXATE [Suspect]
     Active Substance: METHOTREXATE
     Indication: RHEUMATOID ARTHRITIS
     Route: 048
  3. FOLIC ACID. [Concomitant]
     Active Substance: FOLIC ACID
  4. BISOPROLOL [Concomitant]
     Active Substance: BISOPROLOL
  5. SIMVASTATIN. [Concomitant]
     Active Substance: SIMVASTATIN
  6. IRON [Concomitant]
     Active Substance: IRON
  7. ACETYLSALICYLIC ACID [Concomitant]
     Active Substance: ASPIRIN
  8. ISOPHANE INSULIN [Concomitant]
     Active Substance: INSULIN NOS
  9. AMLODIPINE [Concomitant]
     Active Substance: AMLODIPINE BESYLATE
  10. RANITIDINE [Concomitant]
     Active Substance: RANITIDINE\RANITIDINE HYDROCHLORIDE
  11. INSULIN BOVINE/INSULIN BOVINE ZINC SUSPENSION/INSULIN BOVINE ZINC SUSPENSION/INSULIN BOVINE ZINC SUS [Concomitant]
  12. QUINAPRIL/QUINAPRIL HYDROCHLORIDE [Concomitant]
  13. SALAZOPYRIN [Concomitant]
     Active Substance: SULFASALAZINE

REACTIONS (1)
  - Hypoglycaemia [Recovered/Resolved]
